FAERS Safety Report 12477379 (Version 3)
Quarter: 2016Q4

REPORT INFORMATION
  Report Type: Report from Study
  Country: BR (occurrence: BR)
  Receive Date: 20160617
  Receipt Date: 20161007
  Transmission Date: 20170207
  Serious: Yes (Other)
  Sender: FDA-Public Use
  Company Number: PHHY2016BR083127

PATIENT
  Sex: Female
  Weight: 68 kg

DRUGS (2)
  1. EXJADE [Suspect]
     Active Substance: DEFERASIROX
     Dosage: 2 DF, QD
     Route: 065
     Dates: start: 2016
  2. EXJADE [Suspect]
     Active Substance: DEFERASIROX
     Indication: SICKLE CELL ANAEMIA
     Dosage: 750 MG (1 TABLET OF 500 MG AND 1 TABLET OF 250 MG) (10 MG/KG), QD
     Route: 048

REACTIONS (6)
  - Chikungunya virus infection [Unknown]
  - Flavivirus infection [Unknown]
  - Haemoglobin decreased [Unknown]
  - Pain in extremity [Not Recovered/Not Resolved]
  - Pain [Not Recovered/Not Resolved]
  - Serum ferritin abnormal [Unknown]
